FAERS Safety Report 6214349-3 (Version None)
Quarter: 2009Q2

REPORT INFORMATION
  Report Type: 
  Country: None (occurrence: None)
  Receive Date: 20090602
  Receipt Date: 20090529
  Transmission Date: 20091009
  Serious: Yes (Death)
  Sender: FDA-Public Use
  Company Number: 2008SP004175

PATIENT
  Age: 75 Year
  Sex: Male
  Weight: 61 kg

DRUGS (9)
  1. TEMODAL [Suspect]
     Indication: GLIOBLASTOMA MULTIFORME
     Dosage: 150 MG/M2;QD;PO
     Route: 048
     Dates: start: 20070625, end: 20070629
  2. ISOBIDE [Concomitant]
  3. RINDERON [Concomitant]
  4. DEPAKENE [Concomitant]
  5. EXCEGRAN [Concomitant]
  6. PHENOBARBITAL TAB [Concomitant]
  7. MEXITIL [Concomitant]
  8. GASTER D [Concomitant]
  9. KYTRIL [Concomitant]

REACTIONS (1)
  - CARDIAC DISORDER [None]
